FAERS Safety Report 7997537-5 (Version None)
Quarter: 2011Q4

REPORT INFORMATION
  Report Type: 
  Country: None (occurrence: None)
  Receive Date: 20111221
  Receipt Date: 20111216
  Transmission Date: 20120403
  Serious: Yes (Death)
  Sender: FDA-Public Use
  Company Number: FR-PFIZER INC-2011305977

PATIENT
  Sex: Female

DRUGS (2)
  1. VFEND [Suspect]
     Route: 047
  2. VFEND [Suspect]
     Indication: KERATITIS FUNGAL
     Route: 042

REACTIONS (1)
  - DEATH [None]
